FAERS Safety Report 4785317-3 (Version None)
Quarter: 2005Q3

REPORT INFORMATION
  Report Type: 
  Country: None (occurrence: None)
  Receive Date: 20050914
  Receipt Date: 20050706
  Transmission Date: 20060218
  Serious: Yes (Other)
  Sender: FDA-Public Use
  Company Number: 163-20785-05070072

PATIENT
  Sex: 0

DRUGS (1)
  1. THALOMID [Suspect]
     Indication: NON-HODGKIN'S LYMPHOMA
     Dosage: START AT 200MG + TITRATE UPWARD BY 100MG EVERY 1-2 WEEKS UNTIL 800 MG/DAY, QHS, ORAL
     Route: 048
     Dates: start: 20021113

REACTIONS (4)
  - ABDOMINAL PAIN [None]
  - CD4 LYMPHOCYTES DECREASED [None]
  - NAUSEA [None]
  - PHARYNGITIS [None]
